FAERS Safety Report 4949208-7 (Version None)
Quarter: 2006Q1

REPORT INFORMATION
  Report Type: 
  Country: None (occurrence: None)
  Receive Date: 20060321
  Receipt Date: 20060310
  Transmission Date: 20060701
  Serious: Yes (Hospitalization)
  Sender: FDA-Public Use
  Company Number: US-JNJFOC-20060303124

PATIENT
  Sex: Female
  Weight: 97.52 kg

DRUGS (8)
  1. FENTANYL [Suspect]
     Route: 062
  2. FENTANYL [Suspect]
     Route: 062
  3. PAXIL [Concomitant]
     Indication: ANTIDEPRESSANT THERAPY
     Route: 048
  4. XANAX [Concomitant]
     Indication: ANXIETY
     Route: 048
  5. XANAX [Concomitant]
     Indication: PANIC DISORDER
     Route: 048
  6. EFFEXOR [Concomitant]
     Route: 048
  7. EFFEXOR [Concomitant]
     Indication: ANTIDEPRESSANT THERAPY
     Route: 048
  8. PHENERGAN HCL [Concomitant]
     Indication: NAUSEA
     Route: 048

REACTIONS (3)
  - BRONCHITIS [None]
  - PNEUMONIA [None]
  - THERAPEUTIC RESPONSE DECREASED [None]
